FAERS Safety Report 10625748 (Version 1)
Quarter: 2014Q4

REPORT INFORMATION
  Report Type: Spontaneous
  Country: US (occurrence: None)
  Receive Date: 20141203
  Receipt Date: 20141203
  Transmission Date: 20150529
  Serious: No
  Sender: FDA-Public Use
  Company Number: ALL1-2009-00624

PATIENT
  Age: 7 Year
  Sex: Male

DRUGS (1)
  1. DAYTRANA [Suspect]
     Active Substance: METHYLPHENIDATE
     Indication: ATTENTION DEFICIT/HYPERACTIVITY DISORDER
     Route: 062
     Dates: start: 20070925, end: 20070930

REACTIONS (3)
  - Application site rash [None]
  - Application site erythema [None]
  - Application site discolouration [None]

NARRATIVE: CASE EVENT DATE: 200710
